FAERS Safety Report 16888742 (Version 1)
Quarter: 2019Q4

REPORT INFORMATION
  Report Type: Report from Study
  Country: CO (occurrence: CO)
  Receive Date: 20191007
  Receipt Date: 20191007
  Transmission Date: 20200122
  Serious: Yes (Other)
  Sender: FDA-Public Use
  Company Number: CO-ROCHE-2405365

PATIENT
  Sex: Male

DRUGS (3)
  1. CETUXIMAB. [Concomitant]
     Active Substance: CETUXIMAB
  2. AVASTIN [Suspect]
     Active Substance: BEVACIZUMAB
     Indication: PRODUCT USED FOR UNKNOWN INDICATION
     Route: 065
  3. IRINOTECAN [Concomitant]
     Active Substance: IRINOTECAN

REACTIONS (2)
  - Liver injury [Unknown]
  - Arterial injury [Unknown]
